FAERS Safety Report 8578134-X (Version None)
Quarter: 2012Q2

REPORT INFORMATION
  Report Type: 
  Country: None (occurrence: None)
  Receive Date: 20120423
  Receipt Date: 20100327
  Transmission Date: 20120825
  Serious: Yes (Other)
  Sender: FDA-Public Use
  Company Number: PHHY2009US66826

PATIENT
  Age: 87 Year
  Sex: Female

DRUGS (1)
  1. EXJADE [Suspect]
     Dosage: 750 MG, QD

REACTIONS (3)
  - RENAL IMPAIRMENT [None]
  - CONSTIPATION [None]
  - BLOOD CREATININE INCREASED [None]
